FAERS Safety Report 20358375 (Version 1)
Quarter: 2022Q1

REPORT INFORMATION
  Report Type: Spontaneous
  Country: US (occurrence: US)
  Receive Date: 20220120
  Receipt Date: 20220120
  Transmission Date: 20220423
  Serious: No
  Sender: FDA-Public Use
  Company Number: US-SEATTLE GENETICS-2021SGN05946

PATIENT
  Age: 65 Year
  Sex: Female

DRUGS (1)
  1. TUKYSA [Suspect]
     Active Substance: TUCATINIB
     Indication: Breast cancer metastatic
     Dosage: 300 MG, BID
     Dates: start: 20211019

REACTIONS (3)
  - Memory impairment [Unknown]
  - Amnesia [Unknown]
  - Wrong schedule [Unknown]

NARRATIVE: CASE EVENT DATE: 20211117
